FAERS Safety Report 8849762 (Version 2)
Quarter: 2012Q4

REPORT INFORMATION
  Report Type: 
  Country: AU (occurrence: AU)
  Receive Date: 20121019
  Receipt Date: 20121031
  Transmission Date: 20130627
  Serious: Yes (Death, Other)
  Sender: FDA-Public Use
  Company Number: PHHY2012AU093482

PATIENT
  Age: 86 None
  Sex: Female

DRUGS (28)
  1. ACLASTA [Suspect]
     Indication: OSTEOPOROTIC FRACTURE
     Dosage: 5 mg, UNK
     Route: 042
     Dates: start: 20091018
  2. ACLASTA [Suspect]
     Dosage: 5 mg, UNK
     Route: 042
     Dates: start: 20101109
  3. ACLASTA [Suspect]
     Dosage: 5 mg, UNK
     Route: 042
     Dates: start: 20111108
  4. MORPHINE SULFATE [Concomitant]
     Dosage: 10 mg/ml, PRN
     Route: 058
  5. TRIPRIM [Concomitant]
     Dosage: 300 mg, QD
  6. NORSPAN [Concomitant]
     Dosage: 5 mg once weekly
  7. EPILIM [Concomitant]
     Dosage: 200 mg, BID
  8. AMOXIL [Concomitant]
     Dosage: 500 mg, TID
  9. LANOXIN-PG [Concomitant]
     Dosage: 6.25 ug tablets 2 nocte
  10. NOVASOURCE [Concomitant]
     Dosage: 237 ml, TID
  11. STEMETIL [Concomitant]
     Dosage: 5 mg 1 mane a.c
  12. BETALOC [Concomitant]
     Dosage: 100 mg, BID
  13. LASIX [Concomitant]
     Dosage: 40 mg tablets 2 mane a.c
  14. AVANZA [Concomitant]
     Dosage: 45 mg nocte
  15. MOVICOL [Concomitant]
     Dosage: 1 Daily
  16. HIPREX [Concomitant]
     Dosage: 1 g, BID
  17. ALPHAPRESS [Concomitant]
     Dosage: 0.5 DF, TID
  18. MYLANTA ^DOUBLE STRENGTH^ [Concomitant]
     Dosage: 20 DF, TID
  19. CHLORSIG [Concomitant]
     Dosage: 1 drp, TID
  20. TEMAZE [Concomitant]
     Dosage: 2 tablets 1 nocte if required
  21. METOPROLOL [Concomitant]
     Dosage: 100 mg, BID
  22. OXYCODONE HCL CONTRLLED RELEASE [Concomitant]
     Dosage: 5 mg, TID
  23. LOPERAMIDE [Concomitant]
     Dosage: 2 mg m.d.u
  24. SPAN-K [Concomitant]
     Dosage: 600 mg, BID
  25. PANADOL OSTEO [Concomitant]
     Dosage: 665 mg, BID
  26. CALTRATE [Concomitant]
     Dosage: 1500 mg mane p.c
  27. COLOXYL WITH SENNA [Concomitant]
     Dosage: 1 DF, UNK
  28. OSTELIN VITAMIN D [Concomitant]
     Dosage: 1000 Units 1 mane a.c
     Dates: start: 200801

REACTIONS (16)
  - Urosepsis [Fatal]
  - Depression [Unknown]
  - Sleep disorder [Unknown]
  - Insomnia [Unknown]
  - Spinal osteoarthritis [Unknown]
  - Pain [Unknown]
  - Cardiac failure congestive [Unknown]
  - Hearing impaired [Unknown]
  - Osteoarthritis [Unknown]
  - Visual impairment [Unknown]
  - Thoracic vertebral fracture [Unknown]
  - Vascular dementia [Unknown]
  - Cognitive disorder [Unknown]
  - Atrial fibrillation [Recovered/Resolved]
  - Gastrooesophageal reflux disease [Unknown]
  - Constipation [Unknown]
